FAERS Safety Report 17928866 (Version 1)
Quarter: 2020Q2

REPORT INFORMATION
  Report Type: Spontaneous
  Country: ES (occurrence: ES)
  Receive Date: 20200623
  Receipt Date: 20200623
  Transmission Date: 20200714
  Serious: Yes (Hospitalization)
  Sender: FDA-Public Use
  Company Number: ES-TEVA-2020-ES-1789347

PATIENT
  Age: 86 Year
  Sex: Male

DRUGS (1)
  1. BUPRENORFINA (814A) [Suspect]
     Active Substance: BUPRENORPHINE
     Route: 065
     Dates: start: 20200213

REACTIONS (1)
  - Confusional state [Recovered/Resolved]

NARRATIVE: CASE EVENT DATE: 20200504
